FAERS Safety Report 7254034-2 (Version None)
Quarter: 2011Q1

REPORT INFORMATION
  Report Type: 
  Country: None (occurrence: None)
  Receive Date: 20110129
  Receipt Date: 20100319
  Transmission Date: 20110831
  Serious: No
  Sender: FDA-Public Use
  Company Number: US-ABBOTT-10P-163-0633602-00

PATIENT
  Sex: Female
  Weight: 58.112 kg

DRUGS (8)
  1. HUMIRA [Suspect]
     Indication: UVEITIS
     Dosage: LOADING DOSES 4 INJ THEN 2 INJ
     Dates: start: 20100305
  2. PREDNISONE [Concomitant]
     Indication: UVEITIS
     Dosage: EYE DROPS
     Route: 031
  3. HUMIRA [Suspect]
     Indication: COLITIS ULCERATIVE
  4. OGEN [Concomitant]
     Indication: HORMONE REPLACEMENT THERAPY
     Dates: start: 20020101
  5. PRILOSEC [Concomitant]
     Indication: PRODUCT USED FOR UNKNOWN INDICATION
     Dosage: OTC
  6. M.V.I. [Concomitant]
     Indication: PRODUCT USED FOR UNKNOWN INDICATION
  7. VIT D [Concomitant]
     Indication: PRODUCT USED FOR UNKNOWN INDICATION
  8. CALCIUM [Concomitant]
     Indication: PRODUCT USED FOR UNKNOWN INDICATION
     Dosage: AT NIGHT

REACTIONS (4)
  - INJECTION SITE URTICARIA [None]
  - INJECTION SITE PAIN [None]
  - INJECTION SITE HAEMORRHAGE [None]
  - OEDEMA PERIPHERAL [None]
